FAERS Safety Report 5015058-9 (Version None)
Quarter: 2006Q2

REPORT INFORMATION
  Report Type: 
  Country: None (occurrence: None)
  Receive Date: 20060414
  Receipt Date: 20060110
  Transmission Date: 20061013
  Serious: No
  Sender: FDA-Public Use
  Company Number: 2006SP000156

PATIENT
  Age: 76 Year
  Sex: Male
  Weight: 131.5431 kg

DRUGS (3)
  1. LUNESTA [Suspect]
     Indication: INSOMNIA
     Dosage: 1 MG;PRN;ORAL
     Route: 048
     Dates: start: 20051128, end: 20060108
  2. PIOGLITAZONE HCL [Concomitant]
  3. VALSARTAN [Concomitant]

REACTIONS (2)
  - DRUG INEFFECTIVE [None]
  - INSOMNIA [None]
